FAERS Safety Report 25737279 (Version 1)
Quarter: 2025Q3

REPORT INFORMATION
  Report Type: Spontaneous
  Country: US (occurrence: US)
  Receive Date: 20250828
  Receipt Date: 20250828
  Transmission Date: 20251021
  Serious: Yes (Other)
  Sender: COOPERSURGICAL
  Company Number: US-COOPERSURGICAL, INC.-2025CPS006151

PATIENT
  Age: 47 Year
  Sex: Female
  Weight: 68.027 kg

DRUGS (1)
  1. PARAGARD T 380A [Suspect]
     Active Substance: COPPER
     Indication: Contraception
     Route: 015
     Dates: start: 20140822

REACTIONS (12)
  - Uterine leiomyoma [Unknown]
  - Uterine enlargement [Unknown]
  - Device breakage [Recovered/Resolved]
  - Foreign body in reproductive tract [Recovered/Resolved]
  - Complication of device removal [Recovered/Resolved]
  - Sexual dysfunction [Not Recovered/Not Resolved]
  - Emotional distress [Unknown]
  - Abnormal uterine bleeding [Unknown]
  - Device dislocation [Recovered/Resolved]
  - Intermenstrual bleeding [Unknown]
  - Abdominal distension [Unknown]
  - Muscle spasms [Unknown]

NARRATIVE: CASE EVENT DATE: 20170630
